FAERS Safety Report 7234652-8 (Version None)
Quarter: 2011Q1

REPORT INFORMATION
  Report Type: 
  Country: None (occurrence: None)
  Receive Date: 20110120
  Receipt Date: 20110112
  Transmission Date: 20110831
  Serious: No
  Sender: FDA-Public Use
  Company Number: US-BIOGENIDEC-2011BI001481

PATIENT
  Age: 25 Year
  Sex: Female

DRUGS (1)
  1. TYSABRI [Suspect]
     Indication: MULTIPLE SCLEROSIS
     Route: 042
     Dates: start: 20101117

REACTIONS (5)
  - PALLOR [None]
  - ABDOMINAL DISCOMFORT [None]
  - CD4 LYMPHOCYTES INCREASED [None]
  - CD8 LYMPHOCYTES INCREASED [None]
  - NAUSEA [None]
